FAERS Safety Report 16135814 (Version 1)
Quarter: 2019Q1

REPORT INFORMATION
  Report Type: Spontaneous
  Country: US (occurrence: US)
  Receive Date: 20190329
  Receipt Date: 20190329
  Transmission Date: 20190418
  Serious: No
  Sender: FDA-Public Use
  Company Number: US-TEVA-2019-US-1031220

PATIENT
  Sex: Male

DRUGS (1)
  1. VENLAFAXINE HYDROCHLORIDE TEVA [Suspect]
     Active Substance: VENLAFAXINE HYDROCHLORIDE
     Route: 065

REACTIONS (5)
  - Lethargy [Unknown]
  - Abnormal dreams [Unknown]
  - Euphoric mood [Unknown]
  - Limb discomfort [Unknown]
  - Feeling hot [Unknown]
